FAERS Safety Report 5883176-9 (Version None)
Quarter: 2008Q3

REPORT INFORMATION
  Report Type: 
  Country: None (occurrence: None)
  Receive Date: 20080915
  Receipt Date: 20080901
  Transmission Date: 20090109
  Serious: Yes (Hospitalization)
  Sender: FDA-Public Use
  Company Number: PHHO2007CO10856

PATIENT
  Sex: Female
  Weight: 62 kg

DRUGS (10)
  1. BLINDED NO TREATMENT RECEIVED NOMED [Suspect]
     Indication: GLUCOSE TOLERANCE IMPAIRED
     Route: 048
     Dates: start: 20030311
  2. BLINDED PLACEBO PLACEBO [Suspect]
     Indication: GLUCOSE TOLERANCE IMPAIRED
     Route: 048
     Dates: start: 20030311
  3. STARLIX [Suspect]
     Indication: GLUCOSE TOLERANCE IMPAIRED
     Route: 048
     Dates: start: 20030311
  4. BLINDED NO TREATMENT RECEIVED NOMED [Suspect]
     Dosage: UNK, LEVEL 2
     Route: 048
  5. BLINDED PLACEBO PLACEBO [Suspect]
     Dosage: UNK, LEVEL 2
     Route: 048
  6. STARLIX [Suspect]
     Dosage: UNK, LEVEL 2
     Route: 048
  7. PLACEBO OR VALSARTAN [Suspect]
     Indication: CARDIOVASCULAR DISORDER
     Dosage: UNK, LEVEL 1
     Route: 048
     Dates: start: 20030311
  8. PLACEBO OR VALSARTAN [Suspect]
     Dosage: UNK, LEVEL 2
     Route: 048
  9. AMLODIPINE [Concomitant]
  10. HYDROCHLOROTHIAZIDE [Concomitant]

REACTIONS (3)
  - AORTIC VALVE INCOMPETENCE [None]
  - CHEST PAIN [None]
  - HYPERCHOLESTEROLAEMIA [None]
